FAERS Safety Report 25438518 (Version 1)
Quarter: 2025Q2

REPORT INFORMATION
  Report Type: Spontaneous
  Country: US (occurrence: US)
  Receive Date: 20250616
  Receipt Date: 20250616
  Transmission Date: 20250717
  Serious: Yes (Other)
  Sender: ABBVIE
  Company Number: US-ABBVIE-6322363

PATIENT

DRUGS (2)
  1. REFRESH CELLUVISC [Suspect]
     Active Substance: CARBOXYMETHYLCELLULOSE SODIUM
     Indication: Dry eye
     Route: 047
  2. REFRESH CLASSIC [Suspect]
     Active Substance: POLYVINYL ALCOHOL\POVIDONE
     Indication: Dry eye
     Route: 047

REACTIONS (8)
  - Hernia [Unknown]
  - Foot fracture [Unknown]
  - Glaucoma [Unknown]
  - Scar [Unknown]
  - Blood potassium increased [Unknown]
  - Disease risk factor [Unknown]
  - Therapeutic product effect incomplete [Unknown]
  - Surgery [Unknown]
